FAERS Safety Report 9028907 (Version 1)
Quarter: 2013Q1

REPORT INFORMATION
  Report Type: Spontaneous
  Country: US (occurrence: US)
  Receive Date: 20130124
  Receipt Date: 20130124
  Transmission Date: 20140127
  Serious: No
  Sender: FDA-Public Use
  Company Number: US-BAUSCH-BL-2012-000696

PATIENT
  Age: 88 Year
  Sex: Male

DRUGS (2)
  1. ALAWAY [Suspect]
     Indication: EYE PAIN
     Dosage: 1 DROP IN EACH EYE, ONCE DAILY
     Route: 048
     Dates: start: 2011
  2. PROPYLENE GLYCOL [Concomitant]

REACTIONS (1)
  - Instillation site pain [Not Recovered/Not Resolved]
